FAERS Safety Report 6918646-5 (Version None)
Quarter: 2010Q3

REPORT INFORMATION
  Report Type: 
  Country: None (occurrence: None)
  Receive Date: 20100811
  Receipt Date: 20100801
  Transmission Date: 20110219
  Serious: Yes (Death, Other)
  Sender: FDA-Public Use
  Company Number: US-PFIZER INC-2010098146

PATIENT

DRUGS (1)
  1. SUTENT [Suspect]
     Dosage: UNK

REACTIONS (2)
  - DEATH [None]
  - PANCREATITIS [None]
